FAERS Safety Report 5209701-9 (Version None)
Quarter: 2006Q4

REPORT INFORMATION
  Report Type: 
  Country: None (occurrence: None)
  Receive Date: 20061116
  Receipt Date: 20060201
  Transmission Date: 20070319
  Serious: Yes (Other)
  Sender: FDA-Public Use
  Company Number: 24402

PATIENT
  Age: 73 Year
  Sex: Male

DRUGS (1)
  1. CISPLATIN [Suspect]
     Dosage: 160MG IV
     Route: 042
     Dates: start: 20060123

REACTIONS (1)
  - HICCUPS [None]
